FAERS Safety Report 8317892-6 (Version None)
Quarter: 2012Q2

REPORT INFORMATION
  Report Type: 
  Country: None (occurrence: None)
  Receive Date: 20120427
  Receipt Date: 20120423
  Transmission Date: 20120825
  Serious: Yes (Other)
  Sender: FDA-Public Use
  Company Number: US-PFIZER INC-2012100522

PATIENT
  Sex: Male
  Weight: 136 kg

DRUGS (15)
  1. LYRICA [Suspect]
     Indication: FIBROMYALGIA
     Dosage: 150 MG, 3X/DAY
     Route: 048
     Dates: end: 20110601
  2. AMLODIPINE [Concomitant]
     Dosage: UNK
  3. VENLAFAXINE [Concomitant]
     Dosage: UNK
  4. ALPRAZOLAM [Concomitant]
     Dosage: UNK
  5. ABILIFY [Concomitant]
     Dosage: UNK
  6. CLONIDINE [Concomitant]
     Dosage: UNK
  7. LUMIGAN [Concomitant]
     Indication: GLAUCOMA
     Dosage: UNK
  8. GABAPENTIN [Suspect]
     Indication: FIBROMYALGIA
     Dosage: 600 MG, 1X/DAY
     Route: 048
  9. LOVASTATIN [Concomitant]
     Dosage: UNK
  10. ALENDRONATE SODIUM [Concomitant]
     Indication: OSTEOPOROSIS
     Dosage: UNK
  11. ACETYLSALICYLIC ACID [Concomitant]
     Dosage: UNK, 1X/DAY
  12. PHENYTOIN [Concomitant]
     Dosage: UNK
  13. MIRAPEX [Concomitant]
     Dosage: UNK
  14. ZOLPIDEM [Concomitant]
     Dosage: UNK
  15. HYDROCODONE [Concomitant]
     Dosage: UNK

REACTIONS (6)
  - DEPRESSION [None]
  - ARTHROPATHY [None]
  - FIBROMYALGIA [None]
  - PAIN [None]
  - DRUG INEFFECTIVE [None]
  - BLADDER DISORDER [None]
